FAERS Safety Report 8397940-8 (Version None)
Quarter: 2012Q2

REPORT INFORMATION
  Report Type: 
  Country: None (occurrence: None)
  Receive Date: 20120531
  Receipt Date: 20120316
  Transmission Date: 20120825
  Serious: Yes (Death)
  Sender: FDA-Public Use
  Company Number: TW-JNJFOC-20120310032

PATIENT
  Age: 69 Year
  Sex: Male

DRUGS (3)
  1. ULTRACET [Suspect]
     Indication: PRODUCT USED FOR UNKNOWN INDICATION
     Route: 065
  2. WARFARIN SODIUM [Interacting]
     Indication: PRODUCT USED FOR UNKNOWN INDICATION
     Route: 065
  3. GEMCITABINE [Concomitant]
     Indication: PRODUCT USED FOR UNKNOWN INDICATION
     Route: 065

REACTIONS (7)
  - DRUG INTERACTION [None]
  - HAEMORRHAGIC DIATHESIS [None]
  - MUSCULAR WEAKNESS [None]
  - OEDEMA [None]
  - CHEST PAIN [None]
  - INTERNATIONAL NORMALISED RATIO INCREASED [None]
  - DEATH [None]
